FAERS Safety Report 17287581 (Version 2)
Quarter: 2025Q2

REPORT INFORMATION
  Report Type: Spontaneous
  Country: US (occurrence: US)
  Receive Date: 20200120
  Receipt Date: 20250621
  Transmission Date: 20250716
  Serious: Yes (Life-Threatening, Other)
  Sender: AUROBINDO
  Company Number: US-MLMSERVICE-20200103-2112171-1

PATIENT
  Age: 41 Year
  Sex: Male

DRUGS (7)
  1. AMIODARONE HYDROCHLORIDE [Suspect]
     Active Substance: AMIODARONE HYDROCHLORIDE
     Indication: Ventricular tachycardia
     Route: 065
  2. LIDOCAINE [Suspect]
     Active Substance: LIDOCAINE
     Indication: Ventricular tachycardia
     Route: 065
  3. MAGNESIUM SULFATE [Suspect]
     Active Substance: MAGNESIUM SULFATE
     Indication: Ventricular tachycardia
     Route: 065
  4. ISOPROTERENOL [Concomitant]
     Active Substance: ISOPROTERENOL
     Indication: Product used for unknown indication
     Route: 065
  5. LOPERAMIDE [Concomitant]
     Active Substance: LOPERAMIDE
     Indication: Drug use disorder
     Dosage: 200 DOSAGE FORM, ONCE A DAY
     Route: 065
  6. NOREPINEPHRINE [Concomitant]
     Active Substance: NOREPINEPHRINE
     Indication: Product used for unknown indication
     Route: 065
  7. DOPAMINE [Concomitant]
     Active Substance: DOPAMINE HYDROCHLORIDE
     Indication: Product used for unknown indication
     Route: 065

REACTIONS (1)
  - Drug ineffective [Recovered/Resolved]
